FAERS Safety Report 19058866 (Version 3)
Quarter: 2022Q1

REPORT INFORMATION
  Report Type: Spontaneous
  Country: DE (occurrence: DE)
  Receive Date: 20210325
  Receipt Date: 20220217
  Transmission Date: 20220423
  Serious: Yes (Hospitalization)
  Sender: FDA-Public Use
  Company Number: None

PATIENT
  Age: 16 Year
  Sex: Male
  Weight: 58 kg

DRUGS (1)
  1. TRESIBA [Suspect]
     Active Substance: INSULIN DEGLUDEC
     Indication: Type 1 diabetes mellitus
     Dosage: 30 IU, QD
     Route: 058
     Dates: start: 20071001

REACTIONS (3)
  - Blood glucose increased [Unknown]
  - Drug delivery system issue [Unknown]
  - Product administration error [Unknown]

NARRATIVE: CASE EVENT DATE: 20200703
